FAERS Safety Report 22190463 (Version 2)
Quarter: 2023Q2

REPORT INFORMATION
  Report Type: Report from Study
  Country: ES (occurrence: ES)
  Receive Date: 20230410
  Receipt Date: 20230512
  Transmission Date: 20230722
  Serious: Yes (Hospitalization, Other)
  Sender: FDA-Public Use
  Company Number: ES-TAKEDA-2023TUS019480

PATIENT
  Age: 11 Year
  Sex: Male

DRUGS (16)
  1. TEDUGLUTIDE [Suspect]
     Active Substance: TEDUGLUTIDE
     Indication: Short-bowel syndrome
     Dosage: 1.2 GRAM, QD
     Route: 042
     Dates: start: 20190827, end: 20191211
  2. TEDUGLUTIDE [Suspect]
     Active Substance: TEDUGLUTIDE
     Indication: Short-bowel syndrome
     Dosage: 1.2 GRAM, QD
     Route: 042
     Dates: start: 20190827, end: 20191211
  3. TEDUGLUTIDE [Suspect]
     Active Substance: TEDUGLUTIDE
     Indication: Short-bowel syndrome
     Dosage: 1.2 GRAM, QD
     Route: 042
     Dates: start: 20190827, end: 20191211
  4. TEDUGLUTIDE [Suspect]
     Active Substance: TEDUGLUTIDE
     Indication: Short-bowel syndrome
     Dosage: 1.2 GRAM, QD
     Route: 042
     Dates: start: 20190827, end: 20191211
  5. TEDUGLUTIDE [Suspect]
     Active Substance: TEDUGLUTIDE
     Dosage: 1.6 GRAM, QD
     Route: 042
     Dates: start: 202303
  6. TEDUGLUTIDE [Suspect]
     Active Substance: TEDUGLUTIDE
     Dosage: 1.6 GRAM, QD
     Route: 042
     Dates: start: 202303
  7. TEDUGLUTIDE [Suspect]
     Active Substance: TEDUGLUTIDE
     Dosage: 1.6 GRAM, QD
     Route: 042
     Dates: start: 202303
  8. TEDUGLUTIDE [Suspect]
     Active Substance: TEDUGLUTIDE
     Dosage: 1.6 GRAM, QD
     Route: 042
     Dates: start: 202303
  9. IBUPROFEN [Concomitant]
     Active Substance: IBUPROFEN
     Indication: Torticollis
     Dosage: 220 MILLIGRAM, TID
     Route: 048
     Dates: start: 20221017, end: 20221019
  10. ACETAMINOPHEN [Concomitant]
     Active Substance: ACETAMINOPHEN
     Indication: Torticollis
     Dosage: 500 MILLIGRAM, TID
     Route: 048
     Dates: start: 20221017, end: 20221019
  11. ENOXAPARIN [Concomitant]
     Active Substance: ENOXAPARIN
     Indication: Device related thrombosis
     Dosage: 1 MILLIGRAM/KILOGRAM, QD
     Route: 058
     Dates: start: 20221228
  12. NITROUS OXIDE [Concomitant]
     Active Substance: NITROUS OXIDE
     Indication: Sedation
     Dosage: UNK
     Route: 055
     Dates: start: 20220315, end: 20220315
  13. LOPERAMIDE [Concomitant]
     Active Substance: LOPERAMIDE
     Indication: Gastrointestinal disorder
     Dosage: 2 MILLIGRAM, BID
     Route: 048
     Dates: start: 20230414
  14. FERRIC CARBOXYMALTOSE [Concomitant]
     Active Substance: FERRIC CARBOXYMALTOSE
     Indication: Anaemia
     Dosage: 500 MILLIGRAM, QD
     Route: 042
     Dates: start: 20230306, end: 20230306
  15. OMEPRAZOLE [Concomitant]
     Active Substance: OMEPRAZOLE
     Indication: Hyperchlorhydria
     Dosage: 20 MILLIGRAM, QD
     Route: 048
     Dates: start: 202303
  16. URSODIOL [Concomitant]
     Active Substance: URSODIOL
     Indication: Liver disorder
     Dosage: 300 MILLIGRAM, BID
     Route: 048
     Dates: start: 202303

REACTIONS (2)
  - Peritonitis [Recovered/Resolved with Sequelae]
  - Gastrointestinal motility disorder [Recovered/Resolved with Sequelae]

NARRATIVE: CASE EVENT DATE: 20230122
